FAERS Safety Report 10207619 (Version 1)
Quarter: 2014Q2

REPORT INFORMATION
  Report Type: Other
  Country: CA (occurrence: CA)
  Receive Date: 20140530
  Receipt Date: 20140530
  Transmission Date: 20141212
  Serious: Yes (Other)
  Sender: FDA-Public Use
  Company Number: CA-ASTELLAS-2014US005972

PATIENT
  Age: 30 Year
  Sex: Female
  Weight: 44 kg

DRUGS (1)
  1. PROTOPIC [Suspect]
     Indication: PRODUCT USED FOR UNKNOWN INDICATION
     Dosage: 0.5 TEASPOONFUL, 2 EVERY 1 WEEK
     Route: 065

REACTIONS (6)
  - Skin haemorrhage [Recovered/Resolved]
  - Skin swelling [Recovered/Resolved]
  - Drug withdrawal syndrome [Recovered/Resolved]
  - Eczema [Recovered/Resolved]
  - Rash [Recovered/Resolved]
  - Dermatitis [Recovered/Resolved]
